FAERS Safety Report 20216284 (Version 2)
Quarter: 2022Q1

REPORT INFORMATION
  Report Type: Report from Study
  Country: CN (occurrence: CN)
  Receive Date: 20211222
  Receipt Date: 20220218
  Transmission Date: 20220424
  Serious: Yes (Life-Threatening, Hospitalization)
  Sender: FDA-Public Use
  Company Number: CN-KARYOPHARM-2021KPT001610

PATIENT
  Age: 57 Year
  Sex: Male

DRUGS (6)
  1. SELINEXOR [Suspect]
     Active Substance: SELINEXOR
     Indication: Plasma cell myeloma
     Dosage: 100 MG, WEEKLY
     Route: 048
     Dates: start: 20211109, end: 20211130
  2. BORTEZOMIB [Suspect]
     Active Substance: BORTEZOMIB
     Indication: Plasma cell myeloma
     Dosage: 2.41 MG, WEEKLY
     Route: 058
     Dates: start: 20211109, end: 20211130
  3. DEXAMETHASONE [Suspect]
     Active Substance: DEXAMETHASONE
     Indication: Plasma cell myeloma
     Dosage: 100 MG, 2X/WEEK
     Route: 048
     Dates: start: 20211109, end: 20211130
  4. SITAGLIPTIN [Concomitant]
     Active Substance: SITAGLIPTIN
     Indication: Type 2 diabetes mellitus
     Dosage: 1 DOSAGE FORM, BID
     Route: 048
     Dates: start: 202007
  5. ACARBOSE [Concomitant]
     Active Substance: ACARBOSE
     Indication: Type 2 diabetes mellitus
     Dosage: 100 MG, TID
     Route: 048
     Dates: start: 202007
  6. NIMESULIDE [Concomitant]
     Active Substance: NIMESULIDE
     Indication: Pyrexia
     Dosage: 0.1 G, SINGLE
     Route: 048
     Dates: start: 20211126, end: 20211126

REACTIONS (2)
  - Platelet count decreased [Not Recovered/Not Resolved]
  - Pneumonia [Recovered/Resolved]

NARRATIVE: CASE EVENT DATE: 20211130
